FAERS Safety Report 24814698 (Version 1)
Quarter: 2025Q1

REPORT INFORMATION
  Report Type: Spontaneous
  Country: CN (occurrence: CN)
  Receive Date: 20250107
  Receipt Date: 20250107
  Transmission Date: 20250408
  Serious: Yes (Other)
  Sender: UCB
  Company Number: CN-UCBSA-2024068699

PATIENT
  Age: 22 Year
  Sex: Male

DRUGS (5)
  1. LEVETIRACETAM [Suspect]
     Active Substance: LEVETIRACETAM
     Indication: Seizure
  2. VALPROATE SODIUM [Suspect]
     Active Substance: VALPROATE SODIUM
     Indication: Seizure
  3. PERAMPANEL [Suspect]
     Active Substance: PERAMPANEL
     Indication: Seizure
  4. OXCARBAZEPINE [Suspect]
     Active Substance: OXCARBAZEPINE
     Indication: Seizure
  5. CREATINE MONOHYDRATE [Concomitant]
     Active Substance: CREATINE MONOHYDRATE
     Indication: Seizure
     Dosage: 300 MILLIGRAM/KILOGRAM, ONCE DAILY (QD)

REACTIONS (2)
  - Seizure [Recovering/Resolving]
  - Multiple-drug resistance [Unknown]
